FAERS Safety Report 7024657-4 (Version None)
Quarter: 2010Q4

REPORT INFORMATION
  Report Type: 
  Country: None (occurrence: None)
  Receive Date: 20101001
  Receipt Date: 20100923
  Transmission Date: 20110411
  Serious: No
  Sender: FDA-Public Use
  Company Number: US-PFIZER INC-2010101050

PATIENT
  Age: 47 Year
  Sex: Male
  Weight: 108 kg

DRUGS (1)
  1. GEODON [Suspect]
     Indication: BIPOLAR DISORDER
     Dosage: 60 MG, DAILY AT BEDTIME
     Dates: start: 20100805, end: 20100810

REACTIONS (2)
  - DYSPNOEA [None]
  - PARAESTHESIA [None]
